FAERS Safety Report 5995836-X (Version None)
Quarter: 2008Q4

REPORT INFORMATION
  Report Type: 
  Country: None (occurrence: None)
  Receive Date: 20081212
  Receipt Date: 20081130
  Transmission Date: 20090506
  Serious: Yes (Other)
  Sender: FDA-Public Use
  Company Number: US-B.I. PHARMACEUTICALS,INC./RIDGEFIELD-2008-BP-18002BP

PATIENT
  Age: 23 Year
  Sex: Male

DRUGS (1)
  1. DULCOLAX [Suspect]
     Indication: CONSTIPATION
     Dosage: 300MG
     Route: 048

REACTIONS (2)
  - FAECAL INCONTINENCE [None]
  - SURGERY [None]
